FAERS Safety Report 5090689-9 (Version None)
Quarter: 2006Q3

REPORT INFORMATION
  Report Type: 
  Country: None (occurrence: None)
  Receive Date: 20060822
  Receipt Date: 20060810
  Transmission Date: 20061208
  Serious: Yes (Hospitalization)
  Sender: FDA-Public Use
  Company Number: HQWYE336210AUG06

PATIENT
  Age: 82 Year
  Sex: Female

DRUGS (6)
  1. CORDARONE [Suspect]
     Indication: ARRHYTHMIA
     Dosage: 200 MG 1X PER 1 DAY ORAL
     Route: 048
  2. ALDACTONE [Suspect]
     Indication: ESSENTIAL HYPERTENSION
     Dosage: 50 MG 1X PER 1 DAY ORAL
     Route: 048
  3. AMLODIPINE BESYLATE [Suspect]
     Indication: ESSENTIAL HYPERTENSION
     Dosage: 5 MG 1X PER 1 DAY ORAL
     Route: 048
  4. DIAMICRON (GLICLAZIDE, ) [Suspect]
     Indication: DIABETES MELLITUS
     Dosage: 30 MG 2X PER 1 DAY ORAL
     Route: 048
  5. DIGOXIN [Suspect]
     Indication: ARRHYTHMIA
     Dosage: 0.06 MG 1X PER 1 DAY ORAL
     Route: 048
  6. XANAX [Concomitant]

REACTIONS (4)
  - ASTERIXIS [None]
  - CREATININE RENAL CLEARANCE DECREASED [None]
  - HEADACHE [None]
  - MALAISE [None]
